FAERS Safety Report 8492853-5 (Version None)
Quarter: 2012Q3

REPORT INFORMATION
  Report Type: 
  Country: None (occurrence: None)
  Receive Date: 20120706
  Receipt Date: 20120627
  Transmission Date: 20120928
  Serious: Yes (Other)
  Sender: FDA-Public Use
  Company Number: JP-BRISTOL-MYERS SQUIBB COMPANY-16724122

PATIENT

DRUGS (1)
  1. VEPESID [Suspect]

REACTIONS (2)
  - MYOSITIS [None]
  - RHABDOMYOLYSIS [None]
